FAERS Safety Report 17127501 (Version 1)
Quarter: 2019Q4

REPORT INFORMATION
  Report Type: Spontaneous
  Country: US (occurrence: US)
  Receive Date: 20191209
  Receipt Date: 20191209
  Transmission Date: 20200122
  Serious: Yes (Other)
  Sender: FDA-Public Use
  Company Number: US-GLAXOSMITHKLINE-US2019220438

PATIENT
  Sex: Female

DRUGS (1)
  1. INCRUSE ELLIPTA [Suspect]
     Active Substance: UMECLIDINIUM BROMIDE
     Indication: PRODUCT USED FOR UNKNOWN INDICATION
     Dosage: 1 DF, 1D
     Dates: end: 20191203

REACTIONS (9)
  - Ovarian cancer [Unknown]
  - Sepsis [Unknown]
  - Cerebrovascular accident [Unknown]
  - Hysterectomy [Unknown]
  - Dysuria [Unknown]
  - Nausea [Unknown]
  - Dyspnoea [Unknown]
  - Transient ischaemic attack [Unknown]
  - Dermatitis [Unknown]

NARRATIVE: CASE EVENT DATE: 2019
